FAERS Safety Report 8232469-9 (Version None)
Quarter: 2012Q1

REPORT INFORMATION
  Report Type: 
  Country: None (occurrence: None)
  Receive Date: 20120323
  Receipt Date: 20120316
  Transmission Date: 20120608
  Serious: Yes (Other)
  Sender: FDA-Public Use
  Company Number: GB-UCBSA-052915

PATIENT
  Age: 14 Year
  Sex: Female
  Weight: 71.7 kg

DRUGS (3)
  1. KEPPRA [Concomitant]
     Indication: PARTIAL SEIZURES WITH SECONDARY GENERALISATION
     Route: 048
  2. ACETAZOLAMIDE [Concomitant]
     Indication: PARTIAL SEIZURES WITH SECONDARY GENERALISATION
     Route: 048
  3. VIMPAT [Suspect]
     Indication: PARTIAL SEIZURES WITH SECONDARY GENERALISATION
     Dosage: GRADUALLY REDUCED
     Route: 048
     Dates: start: 20111201, end: 20120203

REACTIONS (4)
  - EYE HAEMORRHAGE [None]
  - HAEMATURIA [None]
  - EPISTAXIS [None]
  - GINGIVAL BLEEDING [None]
